FAERS Safety Report 24878789 (Version 1)
Quarter: 2025Q1

REPORT INFORMATION
  Report Type: Spontaneous
  Country: CN (occurrence: CN)
  Receive Date: 20250123
  Receipt Date: 20250123
  Transmission Date: 20250408
  Serious: Yes (Hospitalization)
  Sender: JOURNEY MEDICAL CORPORATION
  Company Number: CN-JOURNEY MEDICAL CORPORATION-2025JNY00003

PATIENT
  Age: 32 Year
  Sex: Female

DRUGS (2)
  1. MINOCYCLINE [Suspect]
     Active Substance: MINOCYCLINE HYDROCHLORIDE
     Indication: Acne
     Dosage: 50 MG CAPSULES, 2X/DAY
  2. VITAMIN B6 [Concomitant]
     Active Substance: PYRIDOXINE HYDROCHLORIDE
     Indication: Acne
     Dosage: 10 MG, 2X/DAY

REACTIONS (2)
  - Hepatitis B reactivation [Recovered/Resolved]
  - Drug-induced liver injury [Recovered/Resolved]
